FAERS Safety Report 12258520 (Version 1)
Quarter: 2016Q2

REPORT INFORMATION
  Report Type: Spontaneous
  Country: US (occurrence: US)
  Receive Date: 20160412
  Receipt Date: 20160412
  Transmission Date: 20160815
  Serious: No
  Sender: FDA-Public Use
  Company Number: US-SA-2015SA049462

PATIENT
  Age: 49 Year
  Sex: Male

DRUGS (1)
  1. ALLEGRA [Suspect]
     Active Substance: FEXOFENADINE HYDROCHLORIDE
     Indication: MULTIPLE ALLERGIES
     Dosage: START DATE: 10 DAYS AGO?END DATE: YESTERDAY?DOSAGE FORM: GEL CAPSULE
     Dates: end: 20150413

REACTIONS (1)
  - Drug ineffective [Unknown]
